FAERS Safety Report 11229402 (Version 1)
Quarter: 2015Q2

REPORT INFORMATION
  Report Type: Spontaneous
  Country: FR (occurrence: FR)
  Receive Date: 20150630
  Receipt Date: 20150630
  Transmission Date: 20150821
  Serious: Yes (Hospitalization)
  Sender: FDA-Public Use
  Company Number: FR-ASTRAZENECA-2015SE62432

PATIENT
  Age: 3952 Week
  Sex: Female

DRUGS (11)
  1. PREDNISOLONE. [Concomitant]
     Active Substance: PREDNISOLONE
  2. MISOPROSTOL. [Concomitant]
     Active Substance: MISOPROSTOL
  3. INEXIUM [Suspect]
     Active Substance: ESOMEPRAZOLE
     Route: 048
     Dates: start: 20141020, end: 20141027
  4. FUROSEMIDE. [Concomitant]
     Active Substance: FUROSEMIDE
     Dosage: 20MG/ML, UNKNOWN
  5. METHOTREXATE (METHOTREXATE SODIUM) [Interacting]
     Active Substance: METHOTREXATE SODIUM
     Route: 041
     Dates: start: 20141021, end: 20141021
  6. ZOPHREN [Concomitant]
     Active Substance: ONDANSETRON
  7. VINCRISTINE [Concomitant]
     Active Substance: VINCRISTINE
  8. LEVOFOLINATE DE CALCIUM [Concomitant]
  9. METOCLOPRAMIDE. [Concomitant]
     Active Substance: METOCLOPRAMIDE
  10. NATULAN [Concomitant]
     Active Substance: PROCARBAZINE HYDROCHLORIDE
  11. RITUXIMAB [Concomitant]
     Active Substance: RITUXIMAB

REACTIONS (3)
  - Drug level above therapeutic [Recovered/Resolved]
  - Acute kidney injury [Recovered/Resolved]
  - Drug interaction [Unknown]

NARRATIVE: CASE EVENT DATE: 20141022
